FAERS Safety Report 6311700-0 (Version None)
Quarter: 2009Q3

REPORT INFORMATION
  Report Type: 
  Country: None (occurrence: None)
  Receive Date: 20090813
  Receipt Date: 20090813
  Transmission Date: 20100115
  Serious: Yes (Other)
  Sender: FDA-Public Use
  Company Number: None

PATIENT
  Sex: Female
  Weight: 88.4514 kg

DRUGS (1)
  1. DILANTIN [Suspect]
     Indication: CONVULSION
     Dosage: 200 MG 3X A DAY 200 MG 2X A DAY
     Dates: start: 20090508

REACTIONS (2)
  - GINGIVAL SWELLING [None]
  - TOOTH DISORDER [None]
